FAERS Safety Report 26144302 (Version 1)
Quarter: 2025Q4

REPORT INFORMATION
  Report Type: Spontaneous
  Country: JP (occurrence: JP)
  Receive Date: 20251211
  Receipt Date: 20251211
  Transmission Date: 20260118
  Serious: Yes (Death, Hospitalization, Other)
  Sender: Steriscience PTE
  Company Number: None

PATIENT
  Age: 65 Year
  Sex: Male

DRUGS (13)
  1. MEROPENEM [Suspect]
     Active Substance: MEROPENEM
     Indication: Stenotrophomonas infection
     Dosage: UNK
     Route: 065
  2. MINOCYCLINE [Suspect]
     Active Substance: MINOCYCLINE HYDROCHLORIDE
     Indication: Stenotrophomonas infection
     Dosage: UNK
     Route: 065
  3. PREDNISOLONE [Concomitant]
     Active Substance: PREDNISOLONE
     Indication: Sarcoidosis
     Dosage: 5 MILLIGRAM, QD
     Route: 065
  4. BEVACIZUMAB [Concomitant]
     Active Substance: BEVACIZUMAB
     Indication: Colorectal cancer stage IV
     Dosage: REPEATED BIWEEKLY, 21 CYCLES
     Route: 065
  5. FLUOROURACIL [Concomitant]
     Active Substance: FLUOROURACIL
     Indication: Colorectal cancer stage IV
     Dosage: 400 MILLIGRAM/SQ. METER, REPEATED BIWEEKLY, 21 CYCLES
     Route: 042
  6. FLUOROURACIL [Concomitant]
     Active Substance: FLUOROURACIL
     Dosage: 2400 MILLIGRAM/SQ. METER, REPEATED BIWEEKLY, 21 CYCLES
     Route: 042
  7. LEUCOVORIN [Concomitant]
     Active Substance: LEUCOVORIN\LEUCOVORIN CALCIUM
     Indication: Colorectal cancer stage IV
     Dosage: 200 MILLIGRAM/SQ. METER, ON DAY 1, REPEATED BIWEEKLY, 21 CYCLES
     Route: 065
  8. OXALIPLATIN [Concomitant]
     Active Substance: OXALIPLATIN
     Indication: Colorectal cancer stage IV
     Dosage: 85 MILLIGRAM/SQ. METER, ON DAY 1, REPEATED BIWEEKLY, 21 CYCLES
     Route: 065
  9. OXALIPLATIN [Concomitant]
     Active Substance: OXALIPLATIN
     Dosage: DOSE WAS REDUCED
     Route: 065
  10. METHYLPREDNISOLONE [Concomitant]
     Active Substance: METHYLPREDNISOLONE
     Indication: Pneumonitis
     Dosage: 1000 MILLIGRAM, QD, FOR THREE DAYS
     Route: 065
  11. ENCORAFENIB [Concomitant]
     Active Substance: ENCORAFENIB
     Indication: Colorectal cancer stage IV
     Dosage: 300 MILLIGRAM, QD
     Route: 065
  12. CETUXIMAB [Concomitant]
     Active Substance: CETUXIMAB
     Indication: Colorectal cancer stage IV
     Dosage: 400 MILLIGRAM/SQ. METER, 5 CYCLES
     Route: 065
  13. CETUXIMAB [Concomitant]
     Active Substance: CETUXIMAB
     Dosage: 250 MILLIGRAM/SQ. METER, QW,5 CYCLES
     Route: 065

REACTIONS (1)
  - Drug ineffective [Fatal]
